FAERS Safety Report 8362548 (Version 2)
Quarter: 2012Q4

REPORT INFORMATION
  Report Type: 
  Country: US (occurrence: US)
  Receive Date: 20120130
  Receipt Date: 20121212
  Transmission Date: 20130627
  Serious: Yes (Other)
  Sender: FDA-Public Use
  Company Number: CHPA2012US001905

PATIENT
  Age: 58 Year
  Sex: Male

DRUGS (2)
  1. EXCEDRIN EXTRA STRENGTH [Suspect]
     Indication: HEADACHE
     Dosage: 3 DF every 3 to 4 hours, as needed
     Route: 048
     Dates: start: 1986, end: 201201
  2. EXCEDRIN EXTRA STRENGTH [Suspect]
     Dosage: 3 DF, every 3-4 hours
     Route: 048
     Dates: start: 1984, end: 1986

REACTIONS (11)
  - Arteriovenous malformation [Recovered/Resolved]
  - Haemorrhage intracranial [Recovered/Resolved]
  - Coagulopathy [Recovered/Resolved]
  - Homicidal ideation [Recovered/Resolved]
  - Suicidal ideation [Recovered/Resolved]
  - Photosensitivity reaction [Unknown]
  - Activities of daily living impaired [Not Recovered/Not Resolved]
  - Headache [Recovered/Resolved]
  - Overdose [Unknown]
  - Incorrect drug administration duration [Unknown]
  - Incorrect dose administered [Unknown]
